FAERS Safety Report 11148709 (Version 1)
Quarter: 2015Q2

REPORT INFORMATION
  Report Type: Report from Study
  Country: US (occurrence: US)
  Receive Date: 20150529
  Receipt Date: 20150529
  Transmission Date: 20150821
  Serious: Yes (Other)
  Sender: FDA-Public Use
  Company Number: US-RECKITT BENCKISER PHARMACEUTICAL, INC-RB-079709-2015

PATIENT
  Age: 55 Year
  Sex: Female

DRUGS (1)
  1. SUBOXONE [Suspect]
     Active Substance: BUPRENORPHINE HYDROCHLORIDE\NALOXONE HYDROCHLORIDE
     Indication: PAIN
     Dosage: UNK
     Route: 065

REACTIONS (5)
  - Drug ineffective for unapproved indication [Not Recovered/Not Resolved]
  - Neoplasm malignant [Not Recovered/Not Resolved]
  - Breast disorder [Not Recovered/Not Resolved]
  - Neck injury [Not Recovered/Not Resolved]
  - Off label use [Not Recovered/Not Resolved]
